FAERS Safety Report 8185406-X (Version None)
Quarter: 2012Q1

REPORT INFORMATION
  Report Type: 
  Country: None (occurrence: None)
  Receive Date: 20120216
  Receipt Date: 20111122
  Transmission Date: 20120608
  Serious: Yes (Other)
  Sender: FDA-Public Use
  Company Number: 2011SCPR003443

PATIENT
  Age: 69 Year
  Sex: Female

DRUGS (3)
  1. LEVOXYL (LEVOTHYROXINE SODIUM) UNKNOWN [Concomitant]
  2. ATENOLOL [Concomitant]
  3. PROPAFENONE HCL [Suspect]
     Indication: HEART RATE IRREGULAR
     Dosage: UNK UNK, BID, ORAL
     Route: 048
     Dates: start: 20100101

REACTIONS (1)
  - HEART RATE IRREGULAR [None]
